FAERS Safety Report 6038371-5 (Version None)
Quarter: 2009Q1

REPORT INFORMATION
  Report Type: 
  Country: None (occurrence: None)
  Receive Date: 20090114
  Receipt Date: 20090114
  Transmission Date: 20090719
  Serious: Yes (Other)
  Sender: FDA-Public Use
  Company Number: None

PATIENT
  Age: 25 Year
  Sex: Male
  Weight: 81.6475 kg

DRUGS (1)
  1. NALTREXONE 50 MG UNKNOWN [Suspect]
     Indication: ALCOHOLISM
     Dosage: ONE TAB DAILY PO
     Route: 048
     Dates: start: 20081215, end: 20081215

REACTIONS (6)
  - DEPRESSION [None]
  - ELEVATED MOOD [None]
  - EUPHORIC MOOD [None]
  - MYALGIA [None]
  - PSYCHOMOTOR HYPERACTIVITY [None]
  - SPEECH DISORDER [None]
